FAERS Safety Report 4633136-0 (Version None)
Quarter: 2005Q2

REPORT INFORMATION
  Report Type: 
  Country: None (occurrence: None)
  Receive Date: 20050412
  Receipt Date: 20050331
  Transmission Date: 20051028
  Serious: Yes (Hospitalization)
  Sender: FDA-Public Use
  Company Number: JP-GLAXOSMITHKLINE-B0376471A

PATIENT
  Age: 46 Year

DRUGS (6)
  1. ZEFIX [Suspect]
     Indication: CHRONIC HEPATITIS
     Dosage: 100MG PER DAY
     Route: 048
     Dates: start: 20001220
  2. LIVACT [Concomitant]
     Route: 048
  3. GASMOTIN [Concomitant]
     Route: 048
  4. SELBEX [Concomitant]
     Route: 048
  5. LASIX [Concomitant]
     Route: 048
  6. URSO 250 [Concomitant]
     Route: 048

REACTIONS (1)
  - HEPATIC NEOPLASM MALIGNANT [None]
